FAERS Safety Report 11130085 (Version 1)
Quarter: 2015Q2

REPORT INFORMATION
  Report Type: Spontaneous
  Country: VE (occurrence: VE)
  Receive Date: 20150521
  Receipt Date: 20150521
  Transmission Date: 20150821
  Serious: Yes (Other)
  Sender: FDA-Public Use
  Company Number: PHHY2014VE130216

PATIENT
  Sex: Female

DRUGS (3)
  1. COMBAREN [Suspect]
     Active Substance: CODEINE PHOSPHATE\DICLOFENAC SODIUM
     Indication: HEADACHE
     Dosage: 50 MG, UNK
     Route: 048
  2. NOVALCINA [Concomitant]
     Indication: HEADACHE
     Route: 065
  3. COMBAREN [Suspect]
     Active Substance: CODEINE PHOSPHATE\DICLOFENAC SODIUM
     Indication: OFF LABEL USE

REACTIONS (7)
  - Pain [Not Recovered/Not Resolved]
  - General physical health deterioration [Unknown]
  - Hydrocephalus [Unknown]
  - Blood pressure abnormal [Not Recovered/Not Resolved]
  - Headache [Unknown]
  - Off label use [Unknown]
  - Gait disturbance [Unknown]
